FAERS Safety Report 17840596 (Version 2)
Quarter: 2020Q2

REPORT INFORMATION
  Report Type: Spontaneous
  Country: US (occurrence: US)
  Receive Date: 20200529
  Receipt Date: 20200624
  Transmission Date: 20200714
  Serious: Yes (Other)
  Sender: FDA-Public Use
  Company Number: US-APOTEX-2020AP011241

PATIENT
  Sex: Male

DRUGS (5)
  1. MOMETASONE [Suspect]
     Active Substance: MOMETASONE
     Indication: NASAL CONGESTION
     Dosage: 2 DF, QD (2 SPRAYS IN EACH NOSTRIL ONCE A DAY)
     Route: 045
     Dates: start: 20200514
  2. MOMETASONE [Suspect]
     Active Substance: MOMETASONE
     Dosage: 2 DF, QD (2 SPRAYS IN EACH NOSTRIL ONCE A DAY)
     Route: 045
     Dates: start: 20200517
  3. NIFEDIPINE. [Concomitant]
     Active Substance: NIFEDIPINE
     Indication: BLOOD PRESSURE MEASUREMENT
     Dosage: UNK, BID
     Route: 065
  4. GABAPENTIN. [Concomitant]
     Active Substance: GABAPENTIN
     Indication: PAIN
     Dosage: UNK UNK, TID
     Route: 065
  5. MOMETASONE [Suspect]
     Active Substance: MOMETASONE
     Dosage: 2 DF, QD (2 SPRAYS IN EACH NOSTRIL ONCE A DAY)
     Route: 045
     Dates: start: 20200516

REACTIONS (2)
  - Mental impairment [Recovered/Resolved]
  - Physical disability [Recovered/Resolved]

NARRATIVE: CASE EVENT DATE: 20200516
